FAERS Safety Report 4976726-8 (Version None)
Quarter: 2006Q2

REPORT INFORMATION
  Report Type: 
  Country: None (occurrence: None)
  Receive Date: 20060418
  Receipt Date: 20060418
  Transmission Date: 20061013
  Serious: Yes (Other)
  Sender: FDA-Public Use
  Company Number: None

PATIENT
  Sex: Male
  Weight: 12.2471 kg

DRUGS (1)
  1. MEFLOQUINE HYDROCHLORIDE [Suspect]
     Indication: MALARIA PROPHYLAXIS
     Dosage: 1/4 TABLET   ONCE WEEKLY  PO
     Route: 048
     Dates: start: 20060317, end: 20060324

REACTIONS (5)
  - ANXIETY [None]
  - HALLUCINATION [None]
  - NIGHTMARE [None]
  - PANIC ATTACK [None]
  - TINNITUS [None]
